FAERS Safety Report 4878481-9 (Version None)
Quarter: 2006Q1

REPORT INFORMATION
  Report Type: 
  Country: None (occurrence: None)
  Receive Date: 20060110
  Receipt Date: 20060103
  Transmission Date: 20060701
  Serious: Yes (Other)
  Sender: FDA-Public Use
  Company Number: US-2005-019003

PATIENT
  Age: 35 Year
  Sex: Female
  Weight: 79.4 kg

DRUGS (2)
  1. MIRENA [Suspect]
     Indication: MENSTRUAL DISORDER
     Dosage: 20 UG/DAY, CONT, INTRA-UTERINE
     Route: 015
     Dates: start: 20041001
  2. WELLBUTRIN [Concomitant]

REACTIONS (4)
  - COMPLICATION OF DEVICE INSERTION [None]
  - PROCEDURAL PAIN [None]
  - RETINAL VEIN OCCLUSION [None]
  - RETINAL VEIN THROMBOSIS [None]
